FAERS Safety Report 10520731 (Version 1)
Quarter: 2014Q4

REPORT INFORMATION
  Report Type: Report from Study
  Country: US (occurrence: US)
  Receive Date: 20141015
  Receipt Date: 20141015
  Transmission Date: 20150528
  Serious: Yes (Other)
  Sender: FDA-Public Use
  Company Number: US-ALEXION-A201002339

PATIENT

DRUGS (1)
  1. SOLIRIS [Suspect]
     Active Substance: ECULIZUMAB
     Indication: PAROXYSMAL NOCTURNAL HAEMOGLOBINURIA
     Dosage: UNK
     Route: 042

REACTIONS (14)
  - Fatigue [Unknown]
  - Haemoglobinuria [Unknown]
  - Cholelithiasis [Unknown]
  - Erectile dysfunction [Unknown]
  - Visual impairment [Unknown]
  - Transfusion [Unknown]
  - Nasopharyngitis [Unknown]
  - Migraine [Unknown]
  - Dysphagia [Unknown]
  - Abdominal pain [Unknown]
  - Liver disorder [Unknown]
  - Influenza [Unknown]
  - Heart rate increased [Unknown]
  - Dyspnoea [Unknown]
